FAERS Safety Report 7275179-7 (Version None)
Quarter: 2011Q1

REPORT INFORMATION
  Report Type: 
  Country: None (occurrence: None)
  Receive Date: 20110204
  Receipt Date: 20110124
  Transmission Date: 20110831
  Serious: Yes (Other)
  Sender: FDA-Public Use
  Company Number: PHHY2011FR06042

PATIENT
  Sex: Female

DRUGS (1)
  1. RASILEZ [Suspect]
     Indication: HYPERTENSION
     Dosage: 150 MG, DAILY
     Dates: start: 20110111, end: 20110114

REACTIONS (3)
  - MALAISE [None]
  - CONVULSION [None]
  - LOSS OF CONSCIOUSNESS [None]
